FAERS Safety Report 7810534-5 (Version None)
Quarter: 2011Q4

REPORT INFORMATION
  Report Type: 
  Country: None (occurrence: None)
  Receive Date: 20111013
  Receipt Date: 20111004
  Transmission Date: 20120403
  Serious: Yes (Other)
  Sender: FDA-Public Use
  Company Number: US-BIOGENIDEC-2011BI025782

PATIENT
  Age: 18 Year
  Sex: Female

DRUGS (5)
  1. BIRTH CONTROL [Concomitant]
     Indication: MENSTRUATION IRREGULAR
  2. TYSABRI [Suspect]
     Indication: MULTIPLE SCLEROSIS
     Route: 042
     Dates: start: 20100804, end: 20110608
  3. PRENATAL VITAMINS [Concomitant]
  4. FLEXERIL [Concomitant]
  5. AMANTADINE HCL [Concomitant]

REACTIONS (3)
  - PREGNANCY [None]
  - MATERNAL EXPOSURE DURING PREGNANCY [None]
  - ABORTION SPONTANEOUS [None]
